FAERS Safety Report 23949492 (Version 1)
Quarter: 2024Q2

REPORT INFORMATION
  Report Type: Spontaneous
  Country: DE (occurrence: DE)
  Receive Date: 20240607
  Receipt Date: 20240607
  Transmission Date: 20240716
  Serious: Yes (Death, Life-Threatening, Hospitalization)
  Sender: FDA-Public Use
  Company Number: None

PATIENT
  Age: 80 Year
  Sex: Female

DRUGS (7)
  1. PREDNISOLONE [Suspect]
     Active Substance: PREDNISOLONE
     Indication: Autoimmune hepatitis
     Dosage: 40 MILLIGRAM, QD (INITIALLY)
     Route: 065
     Dates: start: 202107, end: 2021
  2. AZATHIOPRINE [Suspect]
     Active Substance: AZATHIOPRINE
     Indication: Autoimmune hepatitis
     Dosage: 50 MILLIGRAM, QD (CORRESPONDING TO 1.5 MG/KG BW)
     Route: 065
     Dates: start: 202107, end: 2021
  3. BUDESONIDE [Suspect]
     Active Substance: BUDESONIDE
     Indication: Autoimmune hepatitis
     Dosage: 9 MILLIGRAM, QD (3 ? 3 MG/DAY)
     Route: 065
     Dates: start: 2021
  4. VORICONAZOLE [Concomitant]
     Active Substance: VORICONAZOLE
     Indication: Bronchopulmonary aspergillosis
     Dosage: 400 MILLIGRAM, QD (FOR AN INITIAL PERIOD OF 6 WEEKS)
     Route: 065
     Dates: start: 2021
  5. VORICONAZOLE [Concomitant]
     Active Substance: VORICONAZOLE
     Indication: Herpes simplex pneumonia
  6. ACYCLOVIR [Concomitant]
     Active Substance: ACYCLOVIR
     Indication: Herpes simplex pneumonia
     Dosage: 1200 MILLIGRAM, QD
     Route: 065
     Dates: start: 2021, end: 2021
  7. ACYCLOVIR [Concomitant]
     Active Substance: ACYCLOVIR
     Indication: Bronchopulmonary aspergillosis

REACTIONS (12)
  - Ileus paralytic [Fatal]
  - Hepatic cirrhosis [Fatal]
  - Shock [Fatal]
  - Cardiac failure [Fatal]
  - Hepatic fibrosis [Fatal]
  - Peritonitis [Fatal]
  - Renal abscess [Fatal]
  - Nocardia sepsis [Fatal]
  - Bacterial abdominal infection [Fatal]
  - Pulmonary nocardiosis [Fatal]
  - Pneumonia [Fatal]
  - Retroperitoneal infection [Fatal]

NARRATIVE: CASE EVENT DATE: 20210901
